FAERS Safety Report 23382327 (Version 1)
Quarter: 2024Q1

REPORT INFORMATION
  Report Type: Spontaneous
  Country: US (occurrence: US)
  Receive Date: 20240109
  Receipt Date: 20240109
  Transmission Date: 20240409
  Serious: Yes (Other)
  Sender: FDA-Public Use
  Company Number: US-BRISTOL-MYERS SQUIBB COMPANY-2024-004034

PATIENT
  Age: 77 Year
  Sex: Male

DRUGS (1)
  1. POMALYST [Suspect]
     Active Substance: POMALIDOMIDE
     Indication: Plasma cell myeloma recurrent
     Dosage: TAKE 1 CAPSULE BY MOUTH WHOLE WITH WATER 2HRS BEFORE OR AFTER A MEAL ONCE DAILY FOR 21 DAYS ON AND 7
     Route: 048
     Dates: start: 20221110

REACTIONS (1)
  - Nasopharyngitis [Recovered/Resolved]
